FAERS Safety Report 17887922 (Version 2)
Quarter: 2020Q3

REPORT INFORMATION
  Report Type: Report from Study
  Country: US (occurrence: US)
  Receive Date: 20200612
  Receipt Date: 20200703
  Transmission Date: 20201103
  Serious: Yes (Hospitalization)
  Sender: FDA-Public Use
  Company Number: US-ROCHE-2607997

PATIENT
  Age: 72 Year
  Sex: Male
  Weight: 63.9 kg

DRUGS (14)
  1. VITAMIN C [Concomitant]
     Active Substance: ASCORBIC ACID
  2. ASPIRIN [ACETYLSALICYLIC ACID] [Concomitant]
     Active Substance: ASPIRIN
  3. IBUPROFEN. [Concomitant]
     Active Substance: IBUPROFEN
  4. METOPROLOL TARTRATE. [Concomitant]
     Active Substance: METOPROLOL TARTRATE
  5. CLOTRIMAZOLE. [Concomitant]
     Active Substance: CLOTRIMAZOLE
  6. NYSTATIN. [Concomitant]
     Active Substance: NYSTATIN
  7. NORCO [Concomitant]
     Active Substance: ACETAMINOPHEN\HYDROCODONE BITARTRATE
  8. CABOZANTINIB [Suspect]
     Active Substance: CABOZANTINIB
     Indication: METASTATIC NEOPLASM
     Dosage: ON 11/MAY/2020, HE RECEIVED THE MOST RECENT DOSE OF CABOZANTINIB.
     Route: 048
     Dates: start: 20190402
  9. FERREX [Concomitant]
     Active Substance: FERRIC POLYSACCHARIDE COMPLEX
  10. OMEPRAZOLE. [Concomitant]
     Active Substance: OMEPRAZOLE
  11. GABAPENTIN. [Concomitant]
     Active Substance: GABAPENTIN
  12. FENOFIBRATE. [Concomitant]
     Active Substance: FENOFIBRATE
  13. ATEZOLIZUMAB. [Suspect]
     Active Substance: ATEZOLIZUMAB
     Indication: METASTATIC NEOPLASM
     Dosage: ON 21/APR/2020, HE RECEIVED THE MOST RECENT DOSE OF ATEZOLIZUMAB PRIOR TO THE EVENT
     Route: 042
     Dates: start: 20190402
  14. LIPITOR [Concomitant]
     Active Substance: ATORVASTATIN CALCIUM

REACTIONS (3)
  - Dysphagia [Recovered/Resolved with Sequelae]
  - Weight decreased [Recovered/Resolved with Sequelae]
  - Candida infection [Not Recovered/Not Resolved]

NARRATIVE: CASE EVENT DATE: 20200507
